FAERS Safety Report 4326489-4 (Version None)
Quarter: 2004Q1

REPORT INFORMATION
  Report Type: 
  Country: None (occurrence: None)
  Receive Date: 20040329
  Receipt Date: 20040329
  Transmission Date: 20041129
  Serious: Yes (Hospitalization)
  Sender: FDA-Public Use
  Company Number: None

PATIENT
  Sex: Female
  Weight: 56.6996 kg

DRUGS (3)
  1. LAMISIL [Suspect]
     Indication: ALOPECIA
     Dosage: ONE Q DAY ORAL
     Route: 048
     Dates: start: 20031208, end: 20040122
  2. LAMISIL [Suspect]
     Indication: TINEA CAPITIS
     Dosage: ONE Q DAY ORAL
     Route: 048
     Dates: start: 20031208, end: 20040122
  3. NSAIDS [Concomitant]

REACTIONS (3)
  - CHROMATURIA [None]
  - HEPATITIS [None]
  - MALAISE [None]
